FAERS Safety Report 23990428 (Version 1)
Quarter: 2024Q2

REPORT INFORMATION
  Report Type: Spontaneous
  Country: US (occurrence: US)
  Receive Date: 20240619
  Receipt Date: 20240619
  Transmission Date: 20240716
  Serious: No
  Sender: FDA-Public Use
  Company Number: US-Eisai-EC-2024-165170

PATIENT

DRUGS (1)
  1. LEQEMBI [Suspect]
     Active Substance: LECANEMAB-IRMB
     Indication: Product used for unknown indication
     Dosage: UNKNOWN DOSE
     Route: 042

REACTIONS (2)
  - Infusion related reaction [Unknown]
  - Amyloid related imaging abnormality-oedema/effusion [Unknown]
